FAERS Safety Report 9490850 (Version 1)
Quarter: 2013Q3

REPORT INFORMATION
  Report Type: Spontaneous
  Country: US (occurrence: US)
  Receive Date: 20130830
  Receipt Date: 20130830
  Transmission Date: 20140515
  Serious: No
  Sender: FDA-Public Use
  Company Number: US-PFIZER INC-2013243892

PATIENT
  Age: 73 Year
  Sex: Male
  Weight: 77.1 kg

DRUGS (4)
  1. LYRICA [Suspect]
     Indication: PAIN IN EXTREMITY
     Dosage: 75 MG, 1X/DAY
     Route: 048
     Dates: start: 201308
  2. LYRICA [Suspect]
     Indication: GAIT DISTURBANCE
  3. LYRICA [Suspect]
     Indication: BALANCE DISORDER
  4. MICARDIS [Concomitant]
     Indication: HYPERTENSION
     Dosage: 85 MG, 1X/DAY

REACTIONS (2)
  - Local swelling [Unknown]
  - Neuropathy peripheral [Unknown]
